FAERS Safety Report 6015513-9 (Version None)
Quarter: 2008Q4

REPORT INFORMATION
  Report Type: 
  Country: None (occurrence: None)
  Receive Date: 20081222
  Receipt Date: 20081215
  Transmission Date: 20090506
  Serious: Yes (Death)
  Sender: FDA-Public Use
  Company Number: US-PFIZER INC-2008153592

PATIENT
  Age: 49 Year
  Sex: Male

DRUGS (5)
  1. AMLODIPINE BESYLATE [Suspect]
     Route: 048
  2. ALPRAZOLAM [Suspect]
     Route: 048
  3. COCAINE [Suspect]
  4. AMPHETAMINE SULFATE [Suspect]
  5. MARIJUANA [Suspect]

REACTIONS (1)
  - COMPLETED SUICIDE [None]
